FAERS Safety Report 11078772 (Version 1)
Quarter: 2015Q2

REPORT INFORMATION
  Report Type: Spontaneous
  Country: PH (occurrence: PH)
  Receive Date: 20150430
  Receipt Date: 20150430
  Transmission Date: 20150821
  Serious: Yes (Other)
  Sender: FDA-Public Use
  Company Number: PH-PFIZER INC-2015149521

PATIENT
  Age: 87 Year
  Sex: Female

DRUGS (3)
  1. ASMAVENT [Suspect]
     Active Substance: BUDESONIDE
     Indication: BRONCHIAL DISORDER
     Dosage: 1 NEBULIZATION, EVERY 12 HOURS (WASH MOUTH AND GARGLE AFTER USE)
     Route: 055
     Dates: start: 20140630
  2. DIFLUCAN [Suspect]
     Active Substance: FLUCONAZOLE
     Indication: ANTIFUNGAL TREATMENT
     Dosage: 2 VIALS, 1X/DAY
     Route: 041
     Dates: start: 20140709
  3. MEROPENEM HOSPIRA [Concomitant]
     Indication: ANTIBIOTIC THERAPY
     Dosage: 1 G/ VIAL, 3X/DAY
     Route: 042
     Dates: start: 20140703

REACTIONS (1)
  - Adrenal insufficiency [Unknown]

NARRATIVE: CASE EVENT DATE: 20140711
